FAERS Safety Report 4610022-3 (Version None)
Quarter: 2005Q1

REPORT INFORMATION
  Report Type: 
  Country: None (occurrence: None)
  Receive Date: 20050316
  Receipt Date: 20050310
  Transmission Date: 20050727
  Serious: Yes (Hospitalization, Disabling)
  Sender: FDA-Public Use
  Company Number: US-JNJFOC-20040807725

PATIENT
  Age: 50 Year
  Sex: Female

DRUGS (6)
  1. LEVAQUIN [Suspect]
     Indication: CELLULITIS
  2. XANAX [Concomitant]
  3. KLONOPIN [Concomitant]
  4. FLEXERIL [Concomitant]
  5. SYNTHROID [Concomitant]
  6. TRAMADOL HCL [Concomitant]

REACTIONS (3)
  - CEREBRAL ISCHAEMIA [None]
  - GRAND MAL CONVULSION [None]
  - HUMERUS FRACTURE [None]
